FAERS Safety Report 23034564 (Version 1)
Quarter: 2023Q4

REPORT INFORMATION
  Report Type: Spontaneous
  Country: US (occurrence: US)
  Receive Date: 20231005
  Receipt Date: 20231005
  Transmission Date: 20240109
  Serious: Yes (Death, Hospitalization)
  Sender: FDA-Public Use
  Company Number: US-TAKEDA-2023TUS095833

PATIENT
  Age: 37 Year
  Sex: Female

DRUGS (1)
  1. COLCHICINE [Suspect]
     Active Substance: COLCHICINE
     Indication: Suicide attempt
     Dosage: 24 MILLIGRAM
     Route: 065

REACTIONS (2)
  - Toxicity to various agents [Fatal]
  - Intentional overdose [Unknown]
